FAERS Safety Report 15251234 (Version 1)
Quarter: 2018Q3

REPORT INFORMATION
  Report Type: Spontaneous
  Country: JP (occurrence: JP)
  Receive Date: 20180807
  Receipt Date: 20180807
  Transmission Date: 20181010
  Serious: Yes (Hospitalization)
  Sender: FDA-Public Use
  Company Number: JP-TEVA-2018-JP-933927

PATIENT
  Age: 26 Year
  Sex: Male

DRUGS (1)
  1. FLUTICASONE. [Suspect]
     Active Substance: FLUTICASONE
     Indication: DYSPNOEA
     Route: 050

REACTIONS (2)
  - Pneumothorax [Recovered/Resolved]
  - Bronchopulmonary aspergillosis [Recovered/Resolved]
